FAERS Safety Report 10202249 (Version 2)
Quarter: 2014Q2

REPORT INFORMATION
  Report Type: Spontaneous
  Country: JP (occurrence: JP)
  Receive Date: 20140528
  Receipt Date: 20140615
  Transmission Date: 20141212
  Serious: Yes (Hospitalization)
  Sender: FDA-Public Use
  Company Number: PHHY2014JP063607

PATIENT
  Age: 75 Year
  Sex: Female

DRUGS (2)
  1. AFINITOR [Suspect]
     Indication: BREAST CANCER
     Dosage: 10 MG, DAILY
     Route: 048
     Dates: start: 20140425, end: 20140509
  2. AFINITOR [Suspect]
     Dosage: 5 MG, QD

REACTIONS (2)
  - Skin ulcer [Recovered/Resolved]
  - Stomatitis [Recovered/Resolved]
